FAERS Safety Report 7227571-4 (Version None)
Quarter: 2011Q1

REPORT INFORMATION
  Report Type: 
  Country: None (occurrence: None)
  Receive Date: 20110114
  Receipt Date: 20110111
  Transmission Date: 20110831
  Serious: Yes (Life-Threatening, Hospitalization, Other)
  Sender: FDA-Public Use
  Company Number: BR-ROCHE-666431

PATIENT
  Sex: Female
  Weight: 73 kg

DRUGS (15)
  1. HYDROCORTISONE [Suspect]
     Route: 065
  2. CEPHALEXIN [Concomitant]
  3. CYMBALTA [Concomitant]
  4. ARADOIS H [Concomitant]
  5. METICORTEN [Concomitant]
  6. METHOTREXATE [Concomitant]
     Dosage: DRUG NAME: METOTREXATE
  7. MOTILIUM [Concomitant]
  8. MAREVAN [Concomitant]
  9. TOCILIZUMAB [Suspect]
     Dosage: OTHER INDICATION: RHEUMATOID ARTHRITIS, FORM INFUSION
     Route: 042
     Dates: start: 20100418, end: 20100101
  10. METICORTEN [Concomitant]
  11. METHOTREXATE [Concomitant]
  12. CYMBALTA [Concomitant]
  13. RITUXIMAB [Suspect]
     Dosage: OTHER INDICATION: RHEUMATOID ARTHRITIS, ROUTE: INJECTION; FORM: INFUSION,
     Route: 050
     Dates: start: 20090401, end: 20090401
  14. RITUXIMAB [Suspect]
     Route: 050
     Dates: start: 20100601
  15. CAPTOPRIL [Concomitant]

REACTIONS (14)
  - PULMONARY EMBOLISM [None]
  - DEEP VEIN THROMBOSIS [None]
  - DRUG INEFFECTIVE [None]
  - HYPERTENSION [None]
  - ANTIPHOSPHOLIPID SYNDROME [None]
  - ABASIA [None]
  - HYPERSENSITIVITY [None]
  - PRURITUS [None]
  - SEPTIC SHOCK [None]
  - COMA [None]
  - LUNG INFECTION [None]
  - PNEUMONIA [None]
  - RENAL IMPAIRMENT [None]
  - THIRST [None]
